FAERS Safety Report 9160478 (Version 1)
Quarter: 2013Q1

REPORT INFORMATION
  Report Type: Spontaneous
  Country: IT (occurrence: None)
  Receive Date: 20130220
  Receipt Date: 20130220
  Transmission Date: 20140127
  Serious: Yes (Hospitalization)
  Sender: FDA-Public Use
  Company Number: AUR-APL-2013-01405

PATIENT
  Age: 47 Year
  Sex: Male

DRUGS (6)
  1. LEVOFLOXACIN (LEVOFLOXACIN) [Suspect]
     Route: 048
     Dates: start: 20130202, end: 20130202
  2. SUTENT (SUNITINIB) [Concomitant]
  3. DEPALGOS (OXYCOCET) [Concomitant]
  4. PLASIL [Concomitant]
  5. BETAMETHASONE (BETAMETHASONE) [Concomitant]
  6. LANSOPRAZOLE (LANSOPRAZOLE) [Concomitant]

REACTIONS (5)
  - Dyspnoea [None]
  - Vomiting [None]
  - Generalised erythema [None]
  - Rash [None]
  - Respiratory disorder [None]
